FAERS Safety Report 8544926-6 (Version None)
Quarter: 2012Q3

REPORT INFORMATION
  Report Type: 
  Country: None (occurrence: None)
  Receive Date: 20120727
  Receipt Date: 20120629
  Transmission Date: 20120928
  Serious: Yes (Death, Other)
  Sender: FDA-Public Use
  Company Number: BR-009507513-1205BRA00065

PATIENT

DRUGS (2)
  1. INVANZ [Suspect]
     Indication: CANDIDIASIS
     Dates: start: 20120509, end: 20120511
  2. FLUCONAZOLE [Concomitant]

REACTIONS (6)
  - MEMORY IMPAIRMENT [None]
  - CONFUSIONAL STATE [None]
  - PSYCHOTIC DISORDER [None]
  - ASTHENIA [None]
  - HALLUCINATION [None]
  - MYOCARDIAL INFARCTION [None]
